FAERS Safety Report 7138542-0 (Version None)
Quarter: 2010Q4

REPORT INFORMATION
  Report Type: 
  Country: None (occurrence: None)
  Receive Date: 20101206
  Receipt Date: 20101124
  Transmission Date: 20110411
  Serious: Yes (Death, Hospitalization)
  Sender: FDA-Public Use
  Company Number: BD-ELI_LILLY_AND_COMPANY-BD201012000575

PATIENT
  Sex: Male

DRUGS (1)
  1. PEMETREXED [Suspect]
     Indication: NON-SMALL CELL LUNG CANCER
     Dosage: 500 MG/M2, UNK
     Dates: start: 20100428, end: 20100429

REACTIONS (4)
  - CARDIAC FAILURE [None]
  - HAEMORRHAGE [None]
  - HYPOTENSION [None]
  - RESPIRATORY FAILURE [None]
